FAERS Safety Report 10159415 (Version 1)
Quarter: 2014Q2

REPORT INFORMATION
  Report Type: Spontaneous
  Country: US (occurrence: None)
  Receive Date: 20140507
  Receipt Date: 20140507
  Transmission Date: 20141212
  Serious: Yes (Disabling, Other)
  Sender: FDA-Public Use
  Company Number: None

PATIENT
  Age: 37 Year
  Sex: Male
  Weight: 111.13 kg

DRUGS (1)
  1. METHOCARBAMOL [Suspect]
     Indication: BACK PAIN
     Route: 048
     Dates: start: 20140305, end: 20140331

REACTIONS (4)
  - Muscular weakness [None]
  - Muscle spasms [None]
  - Product substitution issue [None]
  - Product quality issue [None]
